FAERS Safety Report 18959743 (Version 2)
Quarter: 2021Q1

REPORT INFORMATION
  Report Type: Report from Study
  Country: CA (occurrence: CA)
  Receive Date: 20210302
  Receipt Date: 20210329
  Transmission Date: 20210420
  Serious: Yes (Death)
  Sender: FDA-Public Use
  Company Number: CA-ASTRAZENECA-2021A087640

PATIENT
  Age: 22641 Day
  Sex: Male

DRUGS (1)
  1. TAGRISSO [Suspect]
     Active Substance: OSIMERTINIB
     Indication: NON-SMALL CELL LUNG CANCER METASTATIC
     Route: 048
     Dates: start: 20210107, end: 20210113

REACTIONS (5)
  - Metastases to kidney [Fatal]
  - Seizure [Fatal]
  - Metastases to meninges [Fatal]
  - Metastases to central nervous system [Fatal]
  - Metastases to spine [Fatal]
